FAERS Safety Report 5406289-4 (Version None)
Quarter: 2007Q3

REPORT INFORMATION
  Report Type: 
  Country: None (occurrence: None)
  Receive Date: 20070806
  Receipt Date: 20070802
  Transmission Date: 20080115
  Serious: Yes (Death)
  Sender: FDA-Public Use
  Company Number: US-ASTRAZENECA-2007UW18606

PATIENT
  Age: 500 Month
  Sex: Female
  Weight: 112.7 kg

DRUGS (1)
  1. SEROQUEL [Suspect]
     Indication: INSOMNIA
     Dates: start: 20051101

REACTIONS (2)
  - DEATH [None]
  - DIABETES MELLITUS [None]
